FAERS Safety Report 16589372 (Version 5)
Quarter: 2022Q2

REPORT INFORMATION
  Report Type: Spontaneous
  Country: US (occurrence: US)
  Receive Date: 20190718
  Receipt Date: 20220624
  Transmission Date: 20220721
  Serious: Yes (Other)
  Sender: FDA-Public Use
  Company Number: US-PFIZER INC-2019301015

PATIENT
  Age: 32 Year
  Sex: Male

DRUGS (2)
  1. XYNTHA [Suspect]
     Active Substance: ANTIHEMOPHILIC FACTOR, HUMAN RECOMBINANT RESIDUES 743-1636 DELETED
     Indication: Factor VIII deficiency
     Dosage: UNK, AS NEEDED (XYNTHA) IV DAILY X3 DAYS AND REPEAT AS NEEDED FOR MAJOR BLEEDING)
     Route: 042
  2. XYNTHA [Suspect]
     Active Substance: ANTIHEMOPHILIC FACTOR, HUMAN RECOMBINANT RESIDUES 743-1636 DELETED
     Dosage: UNK, AS NEEDED ((XYNTHA) IV DAILY AND REPEAT AS NEEDED FOR MAJOR BLEEDING)

REACTIONS (1)
  - Haemorrhage [Unknown]
